FAERS Safety Report 20874007 (Version 1)
Quarter: 2022Q2

REPORT INFORMATION
  Report Type: Spontaneous
  Country: US (occurrence: None)
  Receive Date: 20220525
  Receipt Date: 20220525
  Transmission Date: 20220720
  Serious: Yes (Other)
  Sender: FDA-Public Use
  Company Number: None

PATIENT
  Sex: Male

DRUGS (2)
  1. GLATIRAMER [Suspect]
     Active Substance: GLATIRAMER
     Indication: Multiple sclerosis
     Dosage: FREQUENCY : 3 TIMES A WEEK;?
     Route: 058
     Dates: start: 20180608
  2. CIALIS TAB [Concomitant]

REACTIONS (1)
  - Road traffic accident [None]

NARRATIVE: CASE EVENT DATE: 20211201
